FAERS Safety Report 10067593 (Version 1)
Quarter: 2014Q2

REPORT INFORMATION
  Report Type: Spontaneous
  Country: GR (occurrence: GR)
  Receive Date: 20140409
  Receipt Date: 20140409
  Transmission Date: 20141212
  Serious: Yes (Other)
  Sender: FDA-Public Use
  Company Number: GR-ROCHE-1375327

PATIENT
  Age: 75 Year
  Sex: Male

DRUGS (3)
  1. RIVOTRIL [Suspect]
     Indication: PHOBIA
     Route: 065
  2. RIVOTRIL [Suspect]
     Indication: PANIC REACTION
  3. XANAX [Concomitant]
     Route: 065

REACTIONS (3)
  - Drug dependence [Unknown]
  - Stress [Unknown]
  - General physical health deterioration [Unknown]
